FAERS Safety Report 8493736-7 (Version None)
Quarter: 2012Q3

REPORT INFORMATION
  Report Type: 
  Country: None (occurrence: None)
  Receive Date: 20120706
  Receipt Date: 20120622
  Transmission Date: 20120928
  Serious: Yes (Other)
  Sender: FDA-Public Use
  Company Number: CHPA2012US013813

PATIENT
  Age: 49 Year
  Sex: Male

DRUGS (2)
  1. EXCEDRIN (MIGRAINE) [Suspect]
     Indication: BACK PAIN
     Dosage: 2 DF, PRN
     Route: 048
  2. EXCEDRIN (MIGRAINE) [Suspect]
     Dosage: 2 DF, PRN
     Route: 048
     Dates: start: 20111201

REACTIONS (2)
  - OFF LABEL USE [None]
  - MENISCUS LESION [None]
